FAERS Safety Report 5676684-7 (Version None)
Quarter: 2008Q1

REPORT INFORMATION
  Report Type: 
  Country: None (occurrence: None)
  Receive Date: 20080318
  Receipt Date: 20080312
  Transmission Date: 20080703
  Serious: Yes (Life-Threatening)
  Sender: FDA-Public Use
  Company Number: THQ2008A00514

PATIENT
  Age: 61 Year
  Sex: Female

DRUGS (5)
  1. LANSOPRAZOLE [Suspect]
     Indication: GASTROOESOPHAGEAL REFLUX DISEASE
     Dosage: 15 MG (1 D); PER ORAL
     Route: 048
  2. ASPEGIC 1000 [Suspect]
     Indication: ACUTE CORONARY SYNDROME
     Dosage: PER ORAL
     Route: 048
     Dates: start: 20070919, end: 20070919
  3. ARIXTRA [Suspect]
     Indication: ANGINA UNSTABLE
     Dosage: 7.5 ML (1 D); SUBCUTANEOUS
     Route: 058
     Dates: start: 20070919, end: 20070919
  4. LEVOTHYROX (LEVOTHYROXINE SODIUM) (TABLETS) [Suspect]
     Indication: HYPOTHYROIDISM
     Dosage: 50 MCG (1 D)PER ORAL
     Route: 048
  5. MOTILIUM [Suspect]
     Indication: GASTROOESOPHAGEAL REFLUX DISEASE
     Dosage: 10 MG (1 D) PER ORAL
     Route: 048

REACTIONS (1)
  - OESOPHAGEAL HAEMORRHAGE [None]
